FAERS Safety Report 14371912 (Version 4)
Quarter: 2019Q1

REPORT INFORMATION
  Report Type: Spontaneous
  Country: IT (occurrence: IT)
  Receive Date: 20180110
  Receipt Date: 20190118
  Transmission Date: 20190417
  Serious: Yes (Hospitalization, Other)
  Sender: FDA-Public Use
  Company Number: IT-MYLANLABS-2018M1001918

PATIENT
  Age: 53 Year
  Sex: Female

DRUGS (2)
  1. ESCITALOPRAM [Suspect]
     Active Substance: ESCITALOPRAM OXALATE
     Indication: PRODUCT USED FOR UNKNOWN INDICATION
     Dosage: 400 MG, TOTAL
     Route: 048
     Dates: start: 20170514
  2. VENLAFAXINE [Suspect]
     Active Substance: VENLAFAXINE HYDROCHLORIDE
     Indication: PRODUCT USED FOR UNKNOWN INDICATION
     Dosage: 525 MG, TOTAL
     Route: 048
     Dates: start: 20170514

REACTIONS (3)
  - Somnolence [Recovered/Resolved]
  - Suicide attempt [Unknown]
  - Sopor [Recovered/Resolved]

NARRATIVE: CASE EVENT DATE: 20170514
